FAERS Safety Report 8327587-0 (Version None)
Quarter: 2012Q2

REPORT INFORMATION
  Report Type: 
  Country: None (occurrence: None)
  Receive Date: 20120502
  Receipt Date: 20120423
  Transmission Date: 20120825
  Serious: Yes (Hospitalization, Other)
  Sender: FDA-Public Use
  Company Number: US-BAYER-2011-084467

PATIENT
  Age: 31 Year
  Sex: Female
  Weight: 39.909 kg

DRUGS (4)
  1. PLAVIX [Concomitant]
  2. DILAUDID [Concomitant]
  3. YAZ [Suspect]
     Indication: CONTRACEPTION
     Dosage: UNK
     Dates: start: 20060101, end: 20080101
  4. TYLENOL (CAPLET) [Concomitant]

REACTIONS (9)
  - INJURY [None]
  - GENERAL PHYSICAL HEALTH DETERIORATION [None]
  - ILIAC ARTERY THROMBOSIS [None]
  - THROMBOSIS [None]
  - ANXIETY [None]
  - ANHEDONIA [None]
  - PAIN [None]
  - EMOTIONAL DISTRESS [None]
  - PERIPHERAL ARTERIAL OCCLUSIVE DISEASE [None]
